FAERS Safety Report 15203280 (Version 1)
Quarter: 2018Q3

REPORT INFORMATION
  Report Type: Spontaneous
  Country: CA (occurrence: CA)
  Receive Date: 20180726
  Receipt Date: 20180726
  Transmission Date: 20181010
  Serious: Yes (Other)
  Sender: FDA-Public Use
  Company Number: CA-FRESENIUS KABI-FK201808260

PATIENT
  Age: 74 Year
  Sex: Female

DRUGS (4)
  1. LIDOCAINE. [Concomitant]
     Active Substance: LIDOCAINE
     Route: 042
     Dates: start: 20180717, end: 20180717
  2. MIDAZOLAM [Concomitant]
     Active Substance: MIDAZOLAM HYDROCHLORIDE
     Route: 042
     Dates: start: 20180717, end: 20180717
  3. PROPOFOL FRESENIUS (NOT SPECIFIED) [Suspect]
     Active Substance: PROPOFOL
     Indication: EUTHANASIA
     Route: 042
     Dates: start: 20180717, end: 20180717
  4. ROCURONIUM [Concomitant]
     Active Substance: ROCURONIUM BROMIDE
     Route: 042
     Dates: start: 20180717, end: 20180717

REACTIONS (2)
  - Drug ineffective [Unknown]
  - Product use in unapproved indication [Unknown]
